FAERS Safety Report 4526010-1 (Version None)
Quarter: 2004Q4

REPORT INFORMATION
  Report Type: 
  Country: None (occurrence: None)
  Receive Date: 20041213
  Receipt Date: 20041213
  Transmission Date: 20050328
  Serious: Yes (Other)
  Sender: FDA-Public Use
  Company Number: None

PATIENT
  Age: 52 Year
  Sex: Female
  Weight: 61.6892 kg

DRUGS (1)
  1. LEVOTHYROXINE   .075 MG    MOVA [Suspect]
     Indication: HYPOTHYROIDISM
     Dosage: ,075 MG   QD  ORAL
     Route: 048
     Dates: start: 20041020, end: 20041119

REACTIONS (1)
  - ALOPECIA [None]
